FAERS Safety Report 8154634-1 (Version None)
Quarter: 2012Q1

REPORT INFORMATION
  Report Type: 
  Country: None (occurrence: None)
  Receive Date: 20120221
  Receipt Date: 20120216
  Transmission Date: 20120608
  Serious: Yes (Other)
  Sender: FDA-Public Use
  Company Number: BR-PFIZER INC-2012042138

PATIENT
  Age: 48 Year
  Sex: Female

DRUGS (2)
  1. CELEBREX [Suspect]
     Indication: MENISCUS LESION
     Dosage: 200 MG, 2X/DAY
     Route: 048
     Dates: start: 20101016, end: 20110101
  2. CELEBREX [Suspect]
     Indication: INFLAMMATION

REACTIONS (2)
  - MENISCUS LESION [None]
  - INFLAMMATION [None]
